FAERS Safety Report 8157321-9 (Version None)
Quarter: 2012Q1

REPORT INFORMATION
  Report Type: 
  Country: None (occurrence: None)
  Receive Date: 20120103
  Receipt Date: 20110930
  Transmission Date: 20120608
  Serious: No
  Sender: FDA-Public Use
  Company Number: AE-2011-001932

PATIENT
  Age: 57 Year
  Sex: Female
  Weight: 81.1939 kg

DRUGS (7)
  1. RIBAVIRIN [Concomitant]
  2. INCIVEK [Suspect]
  3. PEGASYS [Concomitant]
  4. ASPIRIN [Concomitant]
  5. METFORMIN HCL [Concomitant]
  6. LISINOPRIL [Concomitant]
  7. ZOLPIDEM [Concomitant]

REACTIONS (1)
  - INCORRECT DRUG ADMINISTRATION DURATION [None]
